FAERS Safety Report 11241997 (Version 2)
Quarter: 2015Q3

REPORT INFORMATION
  Report Type: Spontaneous
  Country: US (occurrence: US)
  Receive Date: 20150706
  Receipt Date: 20150720
  Transmission Date: 20151125
  Serious: Yes (Other)
  Sender: FDA-Public Use
  Company Number: US-GILEAD-2015-0160791

PATIENT
  Age: 62 Year
  Sex: Male
  Weight: 74 kg

DRUGS (9)
  1. OXYCONTIN [Concomitant]
     Active Substance: OXYCODONE HYDROCHLORIDE
     Dosage: 1 DF, Q5HR
     Route: 048
  2. LASIX [Concomitant]
     Active Substance: FUROSEMIDE
     Dosage: STOPPED
  3. WARFARIN [Concomitant]
     Active Substance: WARFARIN
     Indication: MESENTERIC ARTERY THROMBOSIS
     Dosage: UNK
     Route: 065
  4. OXYGEN. [Concomitant]
     Active Substance: OXYGEN
     Dosage: 2 U/MIN, PRN
     Route: 045
  5. OXYCONTIN [Concomitant]
     Active Substance: OXYCODONE HYDROCHLORIDE
     Dosage: 1 DF, Q8HR, PRN
     Route: 048
  6. HARVONI [Suspect]
     Active Substance: LEDIPASVIR\SOFOSBUVIR
     Indication: HEPATITIS C
     Dosage: 1 DF, QD
     Route: 048
     Dates: start: 20141202, end: 20150127
  7. SYNTHROID [Concomitant]
     Active Substance: LEVOTHYROXINE SODIUM
     Dosage: 80 UG, QD
     Route: 048
  8. PROAIR HFA [Concomitant]
     Active Substance: ALBUTEROL SULFATE
     Dosage: 1-2 PUFFS INTO LUNG, Q4 HRS, PRN
     Route: 050
  9. MULTIVITAMINUM [Concomitant]
     Dosage: 1 DF, QD
     Route: 048

REACTIONS (2)
  - Hepatitis C [Unknown]
  - Drug ineffective [Unknown]

NARRATIVE: CASE EVENT DATE: 20150331
